FAERS Safety Report 10221695 (Version 1)
Quarter: 2014Q1

REPORT INFORMATION
  Report Type: Spontaneous
  Country: US (occurrence: None)
  Receive Date: 20140306
  Receipt Date: 20140306
  Transmission Date: 20141002
  Serious: Yes (Other)
  Sender: FDA-Public Use
  Company Number: 163-21880-13101965

PATIENT
  Age: 66 Year
  Sex: Male

DRUGS (9)
  1. REVLIMID (LENALIDOMIDE) (25 MILLIGRAM, CAPSULES) [Suspect]
     Indication: PLASMA CELL MYELOMA
     Route: 048
     Dates: start: 201302
  2. INDOMETHACIN(INDOMETACIN) [Concomitant]
  3. TAMSALOSIN HCL (TAMSULOSIN) [Concomitant]
  4. PROCHLORPERAZINE(PROCHLORPERAZINE) [Concomitant]
  5. LISINOPRIL(LISINOPRIL) [Concomitant]
  6. TOPROL XL(METOPROLOL SUCCINATE) [Concomitant]
  7. KLOR-CON(POTASSIUM CHLORIDE) [Concomitant]
  8. HYDROCODONE/ACETAMINOPHEN(REMEDEINE) [Concomitant]
  9. DEXAMETHASONE(DEXAMETHASONE) [Concomitant]

REACTIONS (1)
  - Cataract [None]
